FAERS Safety Report 23194716 (Version 1)
Quarter: 2023Q4

REPORT INFORMATION
  Report Type: Spontaneous
  Country: NL (occurrence: NL)
  Receive Date: 20231117
  Receipt Date: 20231117
  Transmission Date: 20240110
  Serious: Yes (Other)
  Sender: FDA-Public Use
  Company Number: NL-LRB-00924078

PATIENT
  Age: 33 Year
  Sex: Male

DRUGS (1)
  1. LORAZEPAM [Suspect]
     Active Substance: LORAZEPAM
     Indication: Psychiatric symptom
     Dosage: 1 MILLIGRAM(2X PER DAG 1 STUK)
     Route: 065
     Dates: start: 20231028

REACTIONS (1)
  - Anterograde amnesia [Recovering/Resolving]
